FAERS Safety Report 8043225-9 (Version None)
Quarter: 2012Q1

REPORT INFORMATION
  Report Type: 
  Country: None (occurrence: None)
  Receive Date: 20120112
  Receipt Date: 20120110
  Transmission Date: 20120608
  Serious: Yes (Death, Life-Threatening)
  Sender: FDA-Public Use
  Company Number: AT-B.I. PHARMACEUTICALS,INC./RIDGEFIELD-2012-AP-00013AP

PATIENT
  Age: 79 Year
  Sex: Female
  Weight: 60 kg

DRUGS (2)
  1. PRADAXA [Suspect]
     Indication: ATRIAL FIBRILLATION
     Dosage: 220 MG
     Route: 048
     Dates: start: 20110101, end: 20110801
  2. KORTISON [Concomitant]
     Indication: COLITIS

REACTIONS (4)
  - PNEUMONIA ASPIRATION [None]
  - DISSEMINATED INTRAVASCULAR COAGULATION [None]
  - LAPAROTOMY [None]
  - HYPOVOLAEMIC SHOCK [None]
